FAERS Safety Report 15248125 (Version 1)
Quarter: 2018Q3

REPORT INFORMATION
  Report Type: Spontaneous
  Country: US (occurrence: US)
  Receive Date: 20180714
  Receipt Date: 20180714
  Transmission Date: 20181010
  Serious: Yes (Disabling, Other)
  Sender: FDA-Public Use
  Company Number: None

PATIENT
  Age: 32 Year
  Sex: Female
  Weight: 54 kg

DRUGS (1)
  1. TRANSDERM?SCOPOLAMINE [Suspect]
     Active Substance: SCOPOLAMINE
     Indication: MOTION SICKNESS
     Dosage: ?          QUANTITY:1 PATCH(ES);OTHER FREQUENCY:EVERY 3 DAYS;?
     Route: 062
     Dates: start: 20180629, end: 20180705

REACTIONS (10)
  - Confusional state [None]
  - Vision blurred [None]
  - Eye swelling [None]
  - Pharyngeal oedema [None]
  - Dry mouth [None]
  - Constipation [None]
  - Swelling face [None]
  - Dizziness [None]
  - Vomiting [None]
  - Dysuria [None]

NARRATIVE: CASE EVENT DATE: 20180705
